FAERS Safety Report 18106323 (Version 2)
Quarter: 2020Q3

REPORT INFORMATION
  Report Type: Spontaneous
  Country: PT (occurrence: PT)
  Receive Date: 20200803
  Receipt Date: 20200806
  Transmission Date: 20201104
  Serious: Yes (Other)
  Sender: FDA-Public Use
  Company Number: PT-ASTRAZENECA-2020SE95224

PATIENT
  Sex: Male
  Weight: 2 kg

DRUGS (14)
  1. AMITRIPTYLINE [Suspect]
     Active Substance: AMITRIPTYLINE
     Route: 064
     Dates: end: 2013
  2. ACETYLSALICYLIC ACID [Suspect]
     Active Substance: ASPIRIN
     Route: 064
     Dates: start: 2013
  3. METHYLDOPA. [Suspect]
     Active Substance: METHYLDOPA
     Route: 064
     Dates: start: 2013
  4. DARBEPOETIN ALFA [Suspect]
     Active Substance: DARBEPOETIN ALFA
     Dosage: 100 MICROGRAM, EVERY WEEK AT THE END OF PREGNANCY
     Route: 064
     Dates: start: 2013
  5. METHYLDOPA. [Suspect]
     Active Substance: METHYLDOPA
     Route: 064
     Dates: start: 2013, end: 2013
  6. VITAMIN B COMPLEX [Suspect]
     Active Substance: CYANOCOBALAMIN\DEXPANTHENOL\NIACINAMIDE\PYRIDOXINE HYDROCHLORIDE\RIBOFLAVIN 5^-PHOSPHATE SODIUM\THIAMINE HYDROCHLORIDE\VITAMIN B COMPLEX
     Dosage: UNKNOWN
     Route: 064
  7. FERROUS SULFATE. [Suspect]
     Active Substance: FERROUS SULFATE
     Dosage: UNKNOWN
     Route: 064
  8. SERTRALINE [Suspect]
     Active Substance: SERTRALINE HYDROCHLORIDE
     Route: 064
  9. ROSUVASTATIN. [Suspect]
     Active Substance: ROSUVASTATIN
     Route: 064
     Dates: end: 2013
  10. FOLIC ACID. [Suspect]
     Active Substance: FOLIC ACID
     Route: 064
  11. DARBEPOETIN ALFA [Suspect]
     Active Substance: DARBEPOETIN ALFA
     Dosage: PROGRESSIVE INCREASE IN DOSE
     Route: 064
     Dates: start: 2013
  12. NIFEDIPINE. [Suspect]
     Active Substance: NIFEDIPINE
     Dosage: UNKNOWN
     Route: 064
     Dates: start: 2013
  13. ALLOPURINOL. [Suspect]
     Active Substance: ALLOPURINOL
     Route: 064
     Dates: end: 2013
  14. BETAMETHASONE. [Suspect]
     Active Substance: BETAMETHASONE
     Indication: MATERNAL THERAPY TO ENHANCE FOETAL LUNG MATURITY
     Dosage: UNKNOWN
     Route: 064
     Dates: start: 2013

REACTIONS (6)
  - Polyuria [Unknown]
  - Low birth weight baby [Unknown]
  - Premature baby [Unknown]
  - Foetal exposure during pregnancy [Unknown]
  - Pyelocaliectasis [Unknown]
  - Foetal growth restriction [Unknown]

NARRATIVE: CASE EVENT DATE: 2013
